FAERS Safety Report 4786849-4 (Version None)
Quarter: 2005Q4

REPORT INFORMATION
  Report Type: 
  Country: None (occurrence: None)
  Receive Date: 20051004
  Receipt Date: 20050920
  Transmission Date: 20060501
  Serious: Yes (Other)
  Sender: FDA-Public Use
  Company Number: US-KINGPHARMUSA00001-K200501233

PATIENT
  Age: 61 Year
  Sex: Female

DRUGS (20)
  1. ALTACE [Suspect]
     Indication: HYPERTENSION
     Dates: start: 20050101
  2. METOPROLOL [Suspect]
     Indication: HYPERTENSION
  3. DETROL [Suspect]
     Indication: URINARY INCONTINENCE
  4. PROCARDIA XL [Suspect]
     Indication: HYPERTENSION
     Dosage: 30 MG, UNK
  5. ZOLOFT [Suspect]
     Indication: DEPRESSION
     Dates: start: 19730101
  6. ACTONEL [Concomitant]
  7. NOVOLIN [Concomitant]
  8. INSULIN [Concomitant]
  9. NPH INSULIN [Concomitant]
  10. BENADRYL ^PFIZER WARNER-LAMBERT^ [Concomitant]
  11. LORATADINE [Concomitant]
  12. METFORMIN [Concomitant]
  13. CATAPRES-TTS-1 [Concomitant]
  14. CLONAZEPAM [Concomitant]
  15. AMBIEN [Concomitant]
  16. CENTRUM [Concomitant]
  17. OSCAL [Concomitant]
  18. PANTOPRAZOLE [Concomitant]
  19. LIPITOR [Suspect]
     Indication: BLOOD CHOLESTEROL INCREASED
     Dosage: 20 MG, QD
     Dates: start: 20050706
  20. DIAGNOSTIC AGENTS [Concomitant]

REACTIONS (7)
  - BLOOD CHOLESTEROL INCREASED [None]
  - BLOOD GLUCOSE INCREASED [None]
  - CARDIAC DISORDER [None]
  - FEELING ABNORMAL [None]
  - HEADACHE [None]
  - MALAISE [None]
  - NERVOUSNESS [None]
